FAERS Safety Report 7021080-3 (Version None)
Quarter: 2010Q3

REPORT INFORMATION
  Report Type: 
  Country: None (occurrence: None)
  Receive Date: 20100929
  Receipt Date: 20100915
  Transmission Date: 20110219
  Serious: Yes (Hospitalization)
  Sender: FDA-Public Use
  Company Number: IR-MYLANLABS-2010S1016905

PATIENT
  Age: 26 Year
  Sex: Female

DRUGS (2)
  1. PROPRANOLOL [Suspect]
     Indication: OVERDOSE
     Dosage: TOOK 90 X 40MG TABLETS
     Route: 048
  2. PROPRANOLOL [Suspect]
     Route: 065

REACTIONS (5)
  - BRADYCARDIA [None]
  - METABOLIC ACIDOSIS [None]
  - OVERDOSE [None]
  - SHOCK [None]
  - TEMPOROMANDIBULAR JOINT SYNDROME [None]
